FAERS Safety Report 23838982 (Version 3)
Quarter: 2024Q2

REPORT INFORMATION
  Report Type: Report from Study
  Country: AR (occurrence: AR)
  Receive Date: 20240509
  Receipt Date: 20240611
  Transmission Date: 20240716
  Serious: Yes (Other)
  Sender: FDA-Public Use
  Company Number: AR-AKCEA THERAPEUTICS, INC.-2024IS004268

PATIENT

DRUGS (3)
  1. TEGSEDI [Suspect]
     Active Substance: INOTERSEN SODIUM
     Indication: Hereditary neuropathic amyloidosis
     Dosage: 284 MILLIGRAM, QW
     Route: 058
     Dates: start: 20210128, end: 20231026
  2. PREGABALIN [Concomitant]
     Active Substance: PREGABALIN
     Indication: Product used for unknown indication
     Dosage: 75 MILLIGRAM
     Route: 065
  3. METFORMIN [Concomitant]
     Active Substance: METFORMIN HYDROCHLORIDE
     Indication: Product used for unknown indication
     Dosage: 850 MILLIGRAM
     Route: 065

REACTIONS (6)
  - Urine protein/creatinine ratio increased [Recovered/Resolved]
  - Blood creatinine decreased [Not Recovered/Not Resolved]
  - Prealbumin abnormal [Not Recovered/Not Resolved]
  - Protein urine present [Not Recovered/Not Resolved]
  - Aspartate aminotransferase increased [Recovered/Resolved]
  - Alanine aminotransferase increased [Recovered/Resolved]

NARRATIVE: CASE EVENT DATE: 20230323
